FAERS Safety Report 4745530-8 (Version None)
Quarter: 2005Q3

REPORT INFORMATION
  Report Type: 
  Country: None (occurrence: None)
  Receive Date: 20050812
  Receipt Date: 20050801
  Transmission Date: 20060218
  Serious: Yes (Other)
  Sender: FDA-Public Use
  Company Number: 2005109720

PATIENT
  Age: 76 Year
  Sex: Female
  Weight: 68.0396 kg

DRUGS (15)
  1. NORVASC [Suspect]
     Indication: HYPERTENSION
     Dosage: 10 MG (5 MG, 2 IN 1 D),
     Dates: start: 20050101
  2. LIPITOR [Suspect]
     Indication: BLOOD CHOLESTEROL INCREASED
     Dosage: 10 MG (10 MG, 1 IN 1 D),
     Dates: end: 20050701
  3. TYLENOL [Suspect]
     Indication: HEADACHE
     Dates: start: 20050721, end: 20050728
  4. ALLOPURINOL [Suspect]
     Indication: BLOOD URIC ACID INCREASED
     Dosage: (100 MG,)
     Dates: end: 20050701
  5. EPIDURAL SPINAL BLOCK (ALL OTHER THERAPEUTIC PRODUCTS) [Suspect]
     Indication: NERVE COMPRESSION
     Dosage: EPIDURAL
     Route: 008
     Dates: start: 20050721
  6. EPIDURAL BLOOD PATCH (ALL OTHER THERAPEUTIC PRODUCTS) [Suspect]
     Indication: HEADACHE
     Dosage: EPIDURAL
     Route: 008
     Dates: start: 20050725
  7. SECTRAL [Concomitant]
  8. AGRYLIN [Concomitant]
  9. DIOVAN [Concomitant]
  10. PERSANTINE [Concomitant]
  11. PREVACID [Concomitant]
  12. ASPIRIN [Concomitant]
  13. XANAX [Concomitant]
  14. AMBIEN [Concomitant]
  15. STOOL SOFTNER (DOCUSATE SODIUM) [Concomitant]

REACTIONS (11)
  - ALANINE AMINOTRANSFERASE INCREASED [None]
  - ASPARTATE AMINOTRANSFERASE INCREASED [None]
  - BACK PAIN [None]
  - BLOOD URIC ACID INCREASED [None]
  - HEPATOTOXICITY [None]
  - HYPERTENSION [None]
  - INTENTIONAL MISUSE [None]
  - LUMBAR PUNCTURE HEADACHE [None]
  - NERVE COMPRESSION [None]
  - POST PROCEDURAL COMPLICATION [None]
  - SCIATICA [None]
